FAERS Safety Report 9769535 (Version 1)
Quarter: 2013Q4

REPORT INFORMATION
  Report Type: Spontaneous
  Country: US (occurrence: US)
  Receive Date: 20131218
  Receipt Date: 20131218
  Transmission Date: 20140711
  Serious: No
  Sender: FDA-Public Use
  Company Number: US-SHIONOGI, INC-2013000322

PATIENT
  Age: 55 Year
  Sex: Female
  Weight: 103.86 kg

DRUGS (2)
  1. OSPHENA [Suspect]
     Indication: VULVOVAGINAL DRYNESS
     Dosage: 60 MG, QD
     Route: 048
     Dates: start: 20131008, end: 20131008
  2. OSPHENA [Suspect]
     Indication: OFF LABEL USE

REACTIONS (3)
  - Acne [Unknown]
  - Drug hypersensitivity [Unknown]
  - Off label use [Unknown]
